FAERS Safety Report 19304141 (Version 1)
Quarter: 2021Q2

REPORT INFORMATION
  Report Type: Report from Study
  Country: None (occurrence: DE)
  Receive Date: 20210525
  Receipt Date: 20210525
  Transmission Date: 20210717
  Serious: Yes (Death)
  Sender: FDA-Public Use
  Company Number: DE-ABBVIE-21K-062-3920815-00

PATIENT
  Age: 67 Year
  Sex: Male

DRUGS (2)
  1. DUODOPA [Suspect]
     Active Substance: CARBIDOPA\LEVODOPA
  2. DUODOPA [Suspect]
     Active Substance: CARBIDOPA\LEVODOPA
     Indication: PARKINSON^S DISEASE
     Dosage: MD 4 ML; CRD 4.4 ML/H; CRN 3.6 ML/H; ED 3 ML
     Route: 050
     Dates: start: 20210122

REACTIONS (1)
  - Death [Fatal]

NARRATIVE: CASE EVENT DATE: 20210520
